FAERS Safety Report 5817684-3 (Version None)
Quarter: 2008Q3

REPORT INFORMATION
  Report Type: 
  Country: None (occurrence: None)
  Receive Date: 20080722
  Receipt Date: 20080711
  Transmission Date: 20090109
  Serious: Yes (Other)
  Sender: FDA-Public Use
  Company Number: US-ELI_LILLY_AND_COMPANY-US200807002247

PATIENT
  Age: 67 Year
  Sex: Female

DRUGS (8)
  1. EVISTA [Suspect]
     Indication: PROPHYLAXIS
     Dosage: 60 MG, DAILY (1/D)
     Dates: start: 20030301, end: 20080601
  2. COUMADIN [Concomitant]
     Indication: ATRIAL FIBRILLATION
     Dosage: 2.5 MG, UNK
     Dates: start: 20021201
  3. COUMADIN [Concomitant]
     Dosage: 5 MG, UNK
  4. DIGOXIN [Concomitant]
  5. ATENOLOL [Concomitant]
  6. VITAMINS NOS [Concomitant]
  7. HYDROCHLOROTHIAZIDE [Concomitant]
  8. PEPCID [Concomitant]

REACTIONS (3)
  - ARTHRALGIA [None]
  - AUTOIMMUNE HEPATITIS [None]
  - HOT FLUSH [None]
